FAERS Safety Report 8302277-9 (Version None)
Quarter: 2012Q2

REPORT INFORMATION
  Report Type: 
  Country: None (occurrence: None)
  Receive Date: 20120420
  Receipt Date: 20120418
  Transmission Date: 20120825
  Serious: Yes (Death, Hospitalization)
  Sender: FDA-Public Use
  Company Number: FR-GENZYME-200910871GPV

PATIENT
  Sex: Female
  Weight: 48 kg

DRUGS (3)
  1. CAMPATH [Suspect]
     Indication: CHRONIC LYMPHOCYTIC LEUKAEMIA
     Dosage: 30 MG, QD, ON FIRST 3 DAYS OF EACH 28 DAY CYCLE
     Route: 058
     Dates: start: 20081001, end: 20081126
  2. CYCLOPHOSPHAMIDE [Suspect]
     Indication: CHRONIC LYMPHOCYTIC LEUKAEMIA
     Dosage: 360 MG, QD ON FIRST 3 DAYS OF EACH 28 DAY CYCLE
     Route: 048
     Dates: start: 20081001, end: 20081126
  3. FLUDARA [Suspect]
     Indication: CHRONIC LYMPHOCYTIC LEUKAEMIA
     Dosage: 57.6 MG, QD ON FIRST 3 DAYS OF EACH 28 DAY CYCLE
     Route: 048
     Dates: start: 20081001, end: 20081126

REACTIONS (2)
  - PROTEIN-LOSING GASTROENTEROPATHY [None]
  - PANCYTOPENIA [None]
